FAERS Safety Report 7474620-4 (Version None)
Quarter: 2011Q2

REPORT INFORMATION
  Report Type: 
  Country: None (occurrence: None)
  Receive Date: 20110503
  Receipt Date: 20110426
  Transmission Date: 20111010
  Serious: Yes (Hospitalization)
  Sender: FDA-Public Use
  Company Number: GER/UKI/11/0018094

PATIENT
  Age: 94 Year
  Sex: Male
  Weight: 63.5 kg

DRUGS (1)
  1. RISPERIDONE [Suspect]
     Indication: AGITATION
     Dosage: 0.25 MG, 2 IN 1 D, ORAL
     Route: 048
     Dates: start: 20110318, end: 20110401

REACTIONS (2)
  - SOMNOLENCE [None]
  - LIVER FUNCTION TEST ABNORMAL [None]
